FAERS Safety Report 4811074-8 (Version None)
Quarter: 2005Q4

REPORT INFORMATION
  Report Type: 
  Country: None (occurrence: None)
  Receive Date: 20051027
  Receipt Date: 20051018
  Transmission Date: 20060501
  Serious: Yes (Other)
  Sender: FDA-Public Use
  Company Number: 2005AC01634

PATIENT
  Age: 22484 Day
  Sex: Female

DRUGS (5)
  1. CRESTOR [Suspect]
     Route: 048
     Dates: start: 20050808, end: 20050811
  2. ACIDUM ACETYLSALICYLICUM CARDIO [Concomitant]
  3. ATENOLOLUM [Concomitant]
  4. COVERSYL [Concomitant]
  5. PLAVIX [Concomitant]

REACTIONS (5)
  - ARRHYTHMIA [None]
  - EYELID DISORDER [None]
  - HEADACHE [None]
  - HEART RATE INCREASED [None]
  - HYPERHIDROSIS [None]
